FAERS Safety Report 22201625 (Version 1)
Quarter: 2023Q2

REPORT INFORMATION
  Report Type: Other
  Country: US (occurrence: None)
  Receive Date: 20230412
  Receipt Date: 20230412
  Transmission Date: 20230722
  Serious: Yes (Other)
  Sender: FDA-Public Use
  Company Number: US-ROCHE-3326587

PATIENT
  Age: 75 Year
  Sex: Female

DRUGS (2)
  1. XELODA [Suspect]
     Active Substance: CAPECITABINE
     Indication: Breast cancer female
     Dosage: TAKE 3 TABLET(S) BY MOUTH EVERY 12 HOURS FOR 7 DAYS ON AND 7 DAYS OFF AFTER MEALS WITH A FULL GLASS
     Route: 048
  2. XELODA [Suspect]
     Active Substance: CAPECITABINE
     Indication: Breast cancer metastatic

REACTIONS (1)
  - Visual impairment [Unknown]
